FAERS Safety Report 5124851-3 (Version None)
Quarter: 2006Q4

REPORT INFORMATION
  Report Type: 
  Country: None (occurrence: None)
  Receive Date: 20061011
  Receipt Date: 20061002
  Transmission Date: 20070319
  Serious: Yes (Other)
  Sender: FDA-Public Use
  Company Number: US-ROCHE-465893

PATIENT
  Age: 56 Year
  Sex: Male

DRUGS (2)
  1. PEGASYS [Suspect]
     Dosage: FORMULATION: 180 MCG/0.5 CC
     Route: 058
     Dates: start: 20050809, end: 20060710
  2. COPEGUS [Suspect]
     Route: 048
     Dates: start: 20050809, end: 20060710

REACTIONS (3)
  - COMMUNICATION DISORDER [None]
  - INTERVERTEBRAL DISC PROTRUSION [None]
  - NEUROPATHY [None]
